FAERS Safety Report 7250216-4 (Version None)
Quarter: 2011Q1

REPORT INFORMATION
  Report Type: 
  Country: None (occurrence: None)
  Receive Date: 20110128
  Receipt Date: 20110111
  Transmission Date: 20110831
  Serious: Yes (Hospitalization)
  Sender: FDA-Public Use
  Company Number: US-BAYER-2011-003025

PATIENT
  Age: 79 Year
  Sex: Male

DRUGS (6)
  1. CIPROFLOXACIN [Suspect]
     Indication: DIVERTICULITIS
     Dosage: UNK
  2. PIPERACILLIN AND TAZOBACTAM [Concomitant]
     Indication: DIVERTICULITIS
     Dosage: 2.25 G, BID
     Route: 042
  3. GLIMEPIRIDE [Interacting]
     Indication: TYPE 2 DIABETES MELLITUS
     Dosage: 1 MG, QD
     Route: 048
  4. ANTIHYPERTENSIVES [Concomitant]
  5. METRONIDAZOLE [Interacting]
     Dosage: 500 MG, TID
     Route: 042
  6. METRONIDAZOLE [Interacting]
     Indication: DIVERTICULITIS
     Dosage: UNK

REACTIONS (2)
  - HYPOTENSION [None]
  - HYPOGLYCAEMIA [None]
